FAERS Safety Report 24557041 (Version 2)
Quarter: 2024Q4

REPORT INFORMATION
  Report Type: Spontaneous
  Country: US (occurrence: US)
  Receive Date: 20241028
  Receipt Date: 20241226
  Transmission Date: 20250114
  Serious: Yes (Hospitalization, Other)
  Sender: AUROBINDO
  Company Number: US-AUROBINDO-AUR-APL-2024-052106

PATIENT
  Age: 19 Year
  Sex: Male

DRUGS (5)
  1. LORAZEPAM [Suspect]
     Active Substance: LORAZEPAM
     Indication: Malignant catatonia
     Dosage: UNK
     Route: 030
  2. LORAZEPAM [Suspect]
     Active Substance: LORAZEPAM
     Dosage: 18 MILLIGRAM ((TOTAL 18MG))
     Route: 048
  3. LORAZEPAM [Suspect]
     Active Substance: LORAZEPAM
     Dosage: SEVEN DOSES BOTH IM AND ORAL 18MG
     Route: 065
  4. VALPROATE [Concomitant]
     Active Substance: VALPROIC ACID
     Indication: Malignant catatonia
     Dosage: 500 MILLIGRAM, TWO TIMES A DAY
     Route: 065
  5. RISPERIDONE [Concomitant]
     Active Substance: RISPERIDONE
     Indication: Psychotic disorder
     Dosage: 0.5 MILLIGRAM, AT BED TIME
     Route: 048

REACTIONS (1)
  - Drug ineffective [Unknown]
